FAERS Safety Report 4600785-5 (Version None)
Quarter: 2005Q1

REPORT INFORMATION
  Report Type: 
  Country: None (occurrence: None)
  Receive Date: 20050304
  Receipt Date: 20050222
  Transmission Date: 20050727
  Serious: Yes (Hospitalization)
  Sender: FDA-Public Use
  Company Number: 2005035968

PATIENT
  Age: 96 Year
  Sex: Female

DRUGS (6)
  1. ARTHROTEC [Suspect]
     Indication: ILL-DEFINED DISORDER
     Dosage: ORAL
     Route: 048
     Dates: start: 20050117, end: 20050124
  2. LORAZEPAM [Suspect]
     Indication: ILL-DEFINED DISORDER
     Dosage: ORAL
     Route: 048
  3. TIANEPTINE (TIANEPTINE) [Suspect]
     Indication: ILL-DEFINED DISORDER
     Dosage: 25 MG (12.5 MG, EVERY DAY), ORAL
     Route: 048
  4. ZOPICLONE (ZOPICLONE) [Concomitant]
  5. RAMIPRIL [Concomitant]
  6. CODEINE PHOSPHATE AND ACETAMINOPHEN [Concomitant]

REACTIONS (2)
  - FALL [None]
  - LOWER LIMB FRACTURE [None]
